FAERS Safety Report 11105019 (Version 5)
Quarter: 2015Q3

REPORT INFORMATION
  Report Type: Report from Study
  Country: US (occurrence: US)
  Receive Date: 20150511
  Receipt Date: 20150701
  Transmission Date: 20151125
  Serious: Yes (Hospitalization)
  Sender: FDA-Public Use
  Company Number: US-009507513-1505USA002797

PATIENT
  Age: 67 Year
  Sex: Female
  Weight: 68.4 kg

DRUGS (7)
  1. ERLOTINIB [Suspect]
     Active Substance: ERLOTINIB
     Indication: NON-SMALL CELL LUNG CANCER
     Dosage: 150 MG, QD
     Route: 048
     Dates: start: 20150417, end: 20150417
  2. ERLOTINIB [Suspect]
     Active Substance: ERLOTINIB
     Dosage: 150 MG, QD
     Route: 048
     Dates: start: 20150505, end: 20150505
  3. TRAZODONE HYDROCHLORIDE. [Concomitant]
     Active Substance: TRAZODONE HYDROCHLORIDE
     Indication: INSOMNIA
     Dosage: TOTAL DAILY DOSE: 50 (UNITS NOT PROVIDED), PRN
     Route: 048
     Dates: start: 20150318, end: 20150417
  4. CLARITIN [Concomitant]
     Active Substance: LORATADINE
     Indication: HYPERSENSITIVITY
     Dosage: UNK, PRN
     Route: 048
     Dates: start: 20150417
  5. NADOLOL. [Concomitant]
     Active Substance: NADOLOL
     Indication: VENTRICULAR EXTRASYSTOLES
     Dosage: 40 MG, QD
     Route: 048
     Dates: start: 20150331
  6. PEMBROLIZUMAB. [Suspect]
     Active Substance: PEMBROLIZUMAB
     Indication: NON-SMALL CELL LUNG CANCER
     Dosage: 2 MG/KG, Q3W
     Route: 042
     Dates: start: 20150417, end: 20150417
  7. CALCIUM (UNSPECIFIED) (+) VITAMIN D (UNSPECIFIED) [Concomitant]
     Active Substance: CALCIUM CARBONATE\VITAMIN D
     Indication: OSTEOPOROSIS
     Dosage: 0.5 TABLET, BID
     Route: 048
     Dates: start: 20150331

REACTIONS (3)
  - Muscular weakness [Not Recovered/Not Resolved]
  - Liver function test abnormal [Recovered/Resolved]
  - Pyrexia [Recovered/Resolved]

NARRATIVE: CASE EVENT DATE: 20150501
